FAERS Safety Report 7824359-8 (Version None)
Quarter: 2011Q4

REPORT INFORMATION
  Report Type: 
  Country: None (occurrence: None)
  Receive Date: 20111019
  Receipt Date: 20111013
  Transmission Date: 20120403
  Serious: Yes (Disabling)
  Sender: FDA-Public Use
  Company Number: FR-KINGPHARMUSA00001-K201101220

PATIENT
  Age: 67 Year
  Sex: Female

DRUGS (6)
  1. ZOPICLONE [Concomitant]
     Dosage: UNK
     Dates: start: 20110201
  2. ADCAL D3 [Concomitant]
  3. BACLOFEN [Concomitant]
     Dosage: UNK
     Dates: start: 20110104, end: 20110204
  4. INDAPAMIDE [Concomitant]
     Dosage: UNK
     Dates: start: 20110715
  5. ALTACE [Suspect]
     Dosage: 5 MG, BID
     Dates: start: 20110407
  6. STRONTIUM RANELATE [Concomitant]
     Dosage: UNK
     Dates: start: 20110318, end: 20110418

REACTIONS (2)
  - ONYCHOLYSIS [None]
  - ONYCHOMYCOSIS [None]
